FAERS Safety Report 5194892-9 (Version None)
Quarter: 2006Q4

REPORT INFORMATION
  Report Type: 
  Country: None (occurrence: None)
  Receive Date: 20061229
  Receipt Date: 20061016
  Transmission Date: 20070319
  Serious: No
  Sender: FDA-Public Use
  Company Number: US-BRISTOL-MYERS SQUIBB COMPANY-13543863

PATIENT
  Age: 7 Decade
  Sex: Female

DRUGS (4)
  1. SPRYCEL [Suspect]
     Indication: CHRONIC MYELOID LEUKAEMIA
     Route: 048
     Dates: start: 20060901
  2. EVISTA [Concomitant]
  3. DIOVAN [Concomitant]
  4. RANITIDINE [Concomitant]

REACTIONS (1)
  - HEADACHE [None]
